FAERS Safety Report 4452795-9 (Version None)
Quarter: 2004Q3

REPORT INFORMATION
  Report Type: 
  Country: None (occurrence: None)
  Receive Date: 20040916
  Receipt Date: 20040906
  Transmission Date: 20050211
  Serious: Yes (Hospitalization)
  Sender: FDA-Public Use
  Company Number: 2004-120110-NL

PATIENT
  Age: 49 Year
  Sex: Female

DRUGS (3)
  1. ZISPIN ORODISPARAIBLE TABLET [Suspect]
     Indication: DEPRESSION
     Dosage: 30 MG
     Route: 048
     Dates: start: 20030101, end: 20040918
  2. DIAZEPAM [Concomitant]
  3. DILTIAZEM [Concomitant]

REACTIONS (3)
  - LOSS OF CONSCIOUSNESS [None]
  - NAUSEA [None]
  - TREMOR [None]
